FAERS Safety Report 7417299-X (Version None)
Quarter: 2011Q2

REPORT INFORMATION
  Report Type: 
  Country: None (occurrence: None)
  Receive Date: 20110415
  Receipt Date: 20110404
  Transmission Date: 20111010
  Serious: No
  Sender: FDA-Public Use
  Company Number: US-JNJFOC-20110402580

PATIENT
  Sex: Female
  Weight: 71.22 kg

DRUGS (10)
  1. PERCOCET [Concomitant]
     Indication: BREAKTHROUGH PAIN
     Route: 048
  2. EFFEXOR [Concomitant]
     Indication: MENTAL DISORDER
     Route: 048
  3. LEVOTHYROXINE [Concomitant]
     Indication: THYROID DISORDER
     Route: 048
  4. TOPIRAMATE [Concomitant]
     Indication: HYPERSOMNIA
     Route: 048
  5. TRAZODONE [Concomitant]
     Indication: SLEEP DISORDER THERAPY
     Route: 048
  6. GABAPENTIN [Concomitant]
     Indication: SLEEP DISORDER THERAPY
     Route: 048
  7. GEMFIBROZIL [Concomitant]
     Indication: BLOOD CHOLESTEROL
     Route: 048
  8. GABAPENTIN [Concomitant]
     Indication: INFLAMMATION
     Route: 048
  9. DURAGESIC [Suspect]
     Indication: PAIN
     Route: 062
  10. OMEPRAZOLE [Concomitant]
     Indication: DYSPEPSIA
     Route: 048

REACTIONS (5)
  - DRUG ADMINISTERED AT INAPPROPRIATE SITE [None]
  - WRONG TECHNIQUE IN DRUG USAGE PROCESS [None]
  - PAIN [None]
  - DRUG DOSE OMISSION [None]
  - PRODUCT QUALITY ISSUE [None]
